FAERS Safety Report 8333015-1 (Version None)
Quarter: 2012Q2

REPORT INFORMATION
  Report Type: 
  Country: None (occurrence: None)
  Receive Date: 20120503
  Receipt Date: 20120424
  Transmission Date: 20120825
  Serious: Yes (Hospitalization)
  Sender: FDA-Public Use
  Company Number: PHHO2012JP005047

PATIENT
  Sex: Female
  Weight: 54 kg

DRUGS (11)
  1. VERAPAMIL HCL [Concomitant]
     Route: 042
  2. ALDACTONE [Concomitant]
     Route: 048
  3. DIOVAN [Suspect]
     Indication: HYPERTENSION
     Dosage: 80 MG, UNK
     Route: 048
  4. INC424 [Suspect]
     Dosage: 10 MG, UNK
     Route: 048
     Dates: start: 20120213, end: 20120307
  5. INC424 [Suspect]
     Dosage: 10 MG, QD
     Route: 048
     Dates: start: 20120424
  6. UREPEARL [Concomitant]
     Indication: DERMATITIS
     Dosage: UNK
  7. INC424 [Suspect]
     Indication: MYELOFIBROSIS
     Dosage: 30 MG, UNK
     Route: 048
     Dates: start: 20110822, end: 20120206
  8. ISOZOL [Concomitant]
     Route: 042
  9. SODIUM CHLORIDE SOLUTION [Concomitant]
     Route: 042
  10. KENALOG [Concomitant]
     Indication: STOMATITIS
     Dosage: UNK
  11. LASIX [Concomitant]
     Route: 048

REACTIONS (1)
  - CARDIAC FAILURE [None]
